FAERS Safety Report 12708299 (Version 1)
Quarter: 2016Q3

REPORT INFORMATION
  Report Type: Spontaneous
  Country: US (occurrence: US)
  Receive Date: 20160901
  Receipt Date: 20160901
  Transmission Date: 20161109
  Serious: Yes (Life-Threatening, Hospitalization)
  Sender: FDA-Public Use
  Company Number: US-MYLANLABS-2016M1037059

PATIENT

DRUGS (2)
  1. HYDROXYCHLOROQUINE [Suspect]
     Active Substance: HYDROXYCHLOROQUINE
     Indication: PRODUCT USED FOR UNKNOWN INDICATION
     Dosage: 60 TABS OF 200 MG
     Route: 065
  2. OXYCODONE AND ACETAMINOPHEN [Suspect]
     Active Substance: ACETAMINOPHEN\OXYCODONE HYDROCHLORIDE
     Indication: PRODUCT USED FOR UNKNOWN INDICATION
     Dosage: 35 TABS OF 5/325 MG
     Route: 065

REACTIONS (9)
  - Cardiac arrest [Unknown]
  - Electrocardiogram U-wave abnormality [Recovered/Resolved]
  - Overdose [Unknown]
  - Torsade de pointes [Recovered/Resolved]
  - Hypokalaemia [Unknown]
  - Agitation [Unknown]
  - Hypotension [Recovered/Resolved]
  - Somnolence [Unknown]
  - Ventricular fibrillation [Unknown]
